FAERS Safety Report 23881127 (Version 1)
Quarter: 2024Q2

REPORT INFORMATION
  Report Type: Spontaneous
  Country: AU (occurrence: AU)
  Receive Date: 20240521
  Receipt Date: 20240521
  Transmission Date: 20240716
  Serious: Yes (Hospitalization)
  Sender: FDA-Public Use
  Company Number: AU-SUN PHARMACEUTICAL INDUSTRIES LTD-2024R1-446979

PATIENT
  Age: 47 Year
  Sex: Female
  Weight: 53.1 kg

DRUGS (11)
  1. OXALIPLATIN [Suspect]
     Active Substance: OXALIPLATIN
     Indication: Gastric cancer
     Dosage: UNK
     Route: 065
  2. CAPECITABINE [Suspect]
     Active Substance: CAPECITABINE
     Indication: Gastric cancer
     Dosage: UNK
     Route: 065
  3. CAFELKIBART [Suspect]
     Active Substance: CAFELKIBART
     Indication: Gastric cancer
     Dosage: 561 MILLIGRAM (10 MG/KG)
     Route: 042
     Dates: start: 20231220
  4. CAFELKIBART [Suspect]
     Active Substance: CAFELKIBART
     Dosage: 544 MILLIGRAM (10 MG/KG)
     Route: 042
     Dates: start: 20240110
  5. TORIPALIMAB [Suspect]
     Active Substance: TORIPALIMAB
     Indication: Gastric cancer
     Dosage: 240 MILLIGRAM ONCE EVERY 3 WEEKS
     Route: 042
     Dates: start: 20231220
  6. TORIPALIMAB [Suspect]
     Active Substance: TORIPALIMAB
     Dosage: 240 MILLIGRAM ONCE EVERY 3 WEEKS
     Route: 042
     Dates: start: 20240110
  7. Dulcolax [Concomitant]
     Indication: Constipation
     Dosage: 1 TABLET, PRN
     Route: 048
     Dates: start: 202310
  8. MYLANTA [Concomitant]
     Active Substance: ALUMINUM HYDROXIDE\DIMETHICONE\MAGNESIUM HYDROXIDE
     Indication: Gastrooesophageal reflux disease
     Dosage: 1 TABLET, PRN
     Route: 048
     Dates: start: 2023
  9. PANTOPRAZOLE [Concomitant]
     Active Substance: PANTOPRAZOLE
     Indication: Gastrooesophageal reflux disease
     Dosage: 40 MILLIGRAM, QD
     Route: 048
     Dates: start: 20240112
  10. ACETAMINOPHEN [Concomitant]
     Active Substance: ACETAMINOPHEN
     Indication: Pain
     Dosage: 1 GRAM, PRN
     Route: 048
     Dates: start: 202310
  11. TAPENTADOL [Concomitant]
     Active Substance: TAPENTADOL
     Indication: Pain
     Dosage: 50 MILLIGRAM, PRN
     Route: 048
     Dates: start: 20231212

REACTIONS (1)
  - Infusion related hypersensitivity reaction [Recovered/Resolved]

NARRATIVE: CASE EVENT DATE: 20240116
